FAERS Safety Report 5376480-4 (Version None)
Quarter: 2007Q3

REPORT INFORMATION
  Report Type: 
  Country: None (occurrence: None)
  Receive Date: 20070702
  Receipt Date: 20070627
  Transmission Date: 20080115
  Serious: Yes (Other)
  Sender: FDA-Public Use
  Company Number: US-PFIZER INC-2007052906

PATIENT
  Sex: Female
  Weight: 117 kg

DRUGS (3)
  1. CELEBREX [Suspect]
     Indication: RHEUMATOID ARTHRITIS
     Dates: start: 20010101, end: 20040201
  2. MEDROXYPROGESTERONE ACETATE [Suspect]
     Indication: VAGINAL HAEMORRHAGE
  3. PRILOSEC [Concomitant]

REACTIONS (9)
  - ANAEMIA [None]
  - ARTHRITIS [None]
  - CARDIAC DISORDER [None]
  - CHEST PAIN [None]
  - DRY MOUTH [None]
  - DYSPNOEA [None]
  - GASTROOESOPHAGEAL REFLUX DISEASE [None]
  - VAGINAL HAEMORRHAGE [None]
  - WEIGHT INCREASED [None]
